FAERS Safety Report 9120966 (Version 1)
Quarter: 2013Q1

REPORT INFORMATION
  Report Type: Report from Study
  Country: IN (occurrence: IN)
  Receive Date: 20130226
  Receipt Date: 20130226
  Transmission Date: 20140127
  Serious: Yes (Death)
  Sender: FDA-Public Use
  Company Number: IN-PFIZER INC-2013067701

PATIENT
  Age: 35 Year
  Sex: Male

DRUGS (4)
  1. CISPLATIN [Suspect]
     Indication: SQUAMOUS CELL CARCINOMA OF HEAD AND NECK
     Dosage: 56 MG, 1X/DAY
     Route: 042
     Dates: start: 20120925, end: 20121106
  2. P276-00 [Suspect]
     Indication: SQUAMOUS CELL CARCINOMA OF HEAD AND NECK
     Dosage: 169 MG, 1X/DAY
     Route: 042
     Dates: start: 20120924, end: 20121109
  3. PANTOPRAZOLE [Concomitant]
     Indication: GASTRITIS PROPHYLAXIS
     Dosage: 40 MG, UNK
     Route: 048
     Dates: start: 20120926, end: 20121114
  4. NIMESULIDE/PARACETAMOL [Concomitant]
     Indication: TUMOUR PAIN
     Dosage: 2 TABLETS
     Route: 048
     Dates: start: 20120914, end: 20121114

REACTIONS (1)
  - Sudden death [Fatal]
